FAERS Safety Report 19843062 (Version 1)
Quarter: 2021Q3

REPORT INFORMATION
  Report Type: Spontaneous
  Country: US (occurrence: US)
  Receive Date: 20210916
  Receipt Date: 20210916
  Transmission Date: 20211014
  Serious: Yes (Other)
  Sender: FDA-Public Use
  Company Number: US-PFIZER INC-202101154440

PATIENT
  Age: 62 Year
  Sex: Male

DRUGS (1)
  1. SULFAMETHOXAZOLE/TRIMETHOPRIM [Suspect]
     Active Substance: SULFAMETHOXAZOLE\TRIMETHOPRIM
     Dosage: UNK

REACTIONS (6)
  - Purpura [Recovered/Resolved with Sequelae]
  - Urticarial vasculitis [Recovered/Resolved]
  - Type IV hypersensitivity reaction [Recovered/Resolved]
  - Cutaneous vasculitis [Recovered/Resolved]
  - Hypersensitivity vasculitis [Recovered/Resolved]
  - Urticaria papular [Recovered/Resolved]
